FAERS Safety Report 23737603 (Version 1)
Quarter: 2024Q2

REPORT INFORMATION
  Report Type: Spontaneous
  Country: US (occurrence: US)
  Receive Date: 20240412
  Receipt Date: 20240412
  Transmission Date: 20240716
  Serious: No
  Sender: FDA-Public Use
  Company Number: US-BAYER-2024A044528

PATIENT
  Age: 60 Year
  Sex: Female

DRUGS (2)
  1. MIRALAX [Suspect]
     Active Substance: POLYETHYLENE GLYCOL 3350
     Indication: Constipation
     Dosage: 1 DF
     Route: 048
     Dates: start: 20240304, end: 20240304
  2. MIRALAX [Suspect]
     Active Substance: POLYETHYLENE GLYCOL 3350
     Indication: Gastrointestinal disorder

REACTIONS (3)
  - Palpitations [Not Recovered/Not Resolved]
  - Malabsorption [None]
  - Incorrect dose administered [None]

NARRATIVE: CASE EVENT DATE: 20240304
